FAERS Safety Report 8410774-0 (Version None)
Quarter: 2012Q2

REPORT INFORMATION
  Report Type: 
  Country: None (occurrence: None)
  Receive Date: 20120605
  Receipt Date: 20120528
  Transmission Date: 20120825
  Serious: Yes (Other)
  Sender: FDA-Public Use
  Company Number: JP-ASTELLAS-2012JP002233

PATIENT
  Age: 18 Year
  Sex: Female
  Weight: 51 kg

DRUGS (10)
  1. RIZABEN [Concomitant]
     Indication: CHRONIC GRAFT VERSUS HOST DISEASE
     Dosage: 100 MG, TID
     Route: 048
     Dates: start: 20060705
  2. PROGRAF [Suspect]
     Indication: CHRONIC GRAFT VERSUS HOST DISEASE
     Dosage: 0.5 MG, TID
     Route: 048
     Dates: start: 20050611, end: 20080714
  3. MELPHALAN [Concomitant]
     Dosage: 140 MG/M2, UNKNOWN/D
     Route: 065
  4. ITRACONAZOLE [Concomitant]
     Indication: INFECTION PROPHYLAXIS
     Dosage: 200 MG, UID/QD
     Route: 048
     Dates: start: 20050611, end: 20080206
  5. METHOTREXATE [Concomitant]
     Indication: CHRONIC GRAFT VERSUS HOST DISEASE
     Dosage: 10 MG, WEEKLY
     Route: 048
     Dates: start: 20060705, end: 20090511
  6. FOLIAMIN [Concomitant]
     Indication: FOLATE DEFICIENCY
     Dosage: 5 MG, WEEKLY
     Route: 048
     Dates: start: 20060705, end: 20090511
  7. PREDNISOLONE [Suspect]
     Indication: CHRONIC GRAFT VERSUS HOST DISEASE
     Dosage: 7.5 MG, BID
     Route: 048
     Dates: start: 20050711, end: 20090413
  8. ZOVIRAX [Concomitant]
     Indication: INFECTION PROPHYLAXIS
     Dosage: 200 MG, BID
     Route: 048
     Dates: start: 20050607, end: 20111218
  9. FAMOTIDINE [Concomitant]
     Indication: GASTRIC DISORDER
     Dosage: 20 MG, UID/QD
     Route: 048
     Dates: start: 20060719, end: 20070723
  10. COTRIM [Concomitant]
     Indication: INFECTION PROPHYLAXIS
     Dosage: 2 DF, QOD
     Route: 048
     Dates: start: 20041201

REACTIONS (4)
  - ACUTE GRAFT VERSUS HOST DISEASE [None]
  - GLUCOSE TOLERANCE IMPAIRED [None]
  - CHRONIC GRAFT VERSUS HOST DISEASE [None]
  - DRUG INEFFECTIVE [None]
